FAERS Safety Report 9165431 (Version 1)
Quarter: 2013Q1

REPORT INFORMATION
  Report Type: Spontaneous
  Country: DE (occurrence: DE)
  Receive Date: 20130315
  Receipt Date: 20130315
  Transmission Date: 20140127
  Serious: Yes (Death, Other)
  Sender: FDA-Public Use
  Company Number: PHHY2013DE024836

PATIENT
  Age: 19 Year
  Sex: Male

DRUGS (7)
  1. CICLOSPORIN [Suspect]
     Indication: EPSTEIN-BARR VIRUS INFECTION
  2. CICLOSPORIN [Suspect]
     Indication: HISTIOCYTOSIS HAEMATOPHAGIC
  3. ETOPOSIDE [Suspect]
     Indication: EPSTEIN-BARR VIRUS INFECTION
  4. ETOPOSIDE [Suspect]
     Indication: HISTIOCYTOSIS HAEMATOPHAGIC
  5. DEXAMETHASONE [Suspect]
     Indication: EPSTEIN-BARR VIRUS INFECTION
  6. DEXAMETHASONE [Suspect]
     Indication: HISTIOCYTOSIS HAEMATOPHAGIC
  7. RITUXIMAB [Suspect]
     Indication: EPSTEIN-BARR VIRUS INFECTION

REACTIONS (6)
  - Multi-organ failure [Fatal]
  - Haemorrhage intracranial [Fatal]
  - Mucosal erosion [Unknown]
  - Laryngeal haemorrhage [Unknown]
  - Pharyngeal haemorrhage [Unknown]
  - Epistaxis [Unknown]
